FAERS Safety Report 6929102-2 (Version None)
Quarter: 2010Q3

REPORT INFORMATION
  Report Type: 
  Country: None (occurrence: None)
  Receive Date: 20100817
  Receipt Date: 20100804
  Transmission Date: 20110219
  Serious: Yes (Other)
  Sender: FDA-Public Use
  Company Number: JP-ABBOTT-10P-087-0651662-00

PATIENT
  Sex: Male
  Weight: 29 kg

DRUGS (8)
  1. KLARICID TAB [Suspect]
     Indication: SINUSITIS
     Route: 048
     Dates: start: 20100414, end: 20100420
  2. KLARICID TAB [Suspect]
     Route: 048
     Dates: start: 20100425, end: 20100509
  3. KLARICID TAB [Suspect]
     Route: 048
     Dates: start: 20100512, end: 20100517
  4. NOVO RAPID [Suspect]
     Indication: TYPE 1 DIABETES MELLITUS
     Dosage: 5 U IN THE MORNING, 6-7 U AT NOON, 6-7 U IN EVENING
     Route: 058
  5. LEVEMIR [Suspect]
     Indication: TYPE 1 DIABETES MELLITUS
     Route: 058
     Dates: end: 20100424
  6. LEVEMIR [Suspect]
     Dosage: AT BEDTIME
     Route: 058
     Dates: start: 20100425
  7. INSULIN ASPART [Concomitant]
     Indication: TYPE 1 DIABETES MELLITUS
     Dosage: 20 UNIT DAILY
     Route: 058
  8. INSULIN DETEMIR [Concomitant]
     Indication: TYPE 1 DIABETES MELLITUS
     Dosage: 9 UNIT DAILY
     Route: 058

REACTIONS (4)
  - CONVULSION [None]
  - DIARRHOEA [None]
  - HYPOGLYCAEMIA [None]
  - LOSS OF CONSCIOUSNESS [None]
